FAERS Safety Report 15681288 (Version 3)
Quarter: 2019Q1

REPORT INFORMATION
  Report Type: Spontaneous
  Country: FR (occurrence: FR)
  Receive Date: 20181203
  Receipt Date: 20190107
  Transmission Date: 20190417
  Serious: Yes (Hospitalization)
  Sender: FDA-Public Use
  Company Number: FR-JNJFOC-20181139117

PATIENT
  Age: 70 Year
  Sex: Male
  Weight: 64 kg

DRUGS (8)
  1. AMOXICILLIN. [Concomitant]
     Active Substance: AMOXICILLIN
     Route: 065
  2. KAYEXALATE [Concomitant]
     Active Substance: SODIUM POLYSTYRENE SULFONATE
     Route: 065
  3. VALACYCLOVIR [Concomitant]
     Active Substance: VALACYCLOVIR HYDROCHLORIDE
     Route: 065
  4. BINOCRIT [Concomitant]
     Active Substance: ERYTHROPOIETIN
     Dosage: ONE INJECTION EACH MONDAY
     Route: 065
  5. AMLOR [Concomitant]
     Active Substance: AMLODIPINE BESYLATE
     Route: 065
  6. BISOCE [Concomitant]
     Active Substance: BISOPROLOL
     Route: 065
  7. DARZALEX [Suspect]
     Active Substance: DARATUMUMAB
     Indication: PLASMA CELL MYELOMA
     Route: 041
     Dates: start: 20180822, end: 20180926
  8. PARACETAMOL [Concomitant]
     Active Substance: ACETAMINOPHEN
     Route: 065

REACTIONS (9)
  - Diarrhoea [Unknown]
  - Hepatosplenomegaly [Unknown]
  - Back pain [Unknown]
  - Drug ineffective [Unknown]
  - Cardiac failure [Not Recovered/Not Resolved]
  - Pulmonary arterial hypertension [Not Recovered/Not Resolved]
  - Leukopenia [Unknown]
  - Thrombocytopenia [Unknown]
  - Plasma cell myeloma [Unknown]

NARRATIVE: CASE EVENT DATE: 201809
